FAERS Safety Report 8121063-6 (Version None)
Quarter: 2012Q1

REPORT INFORMATION
  Report Type: 
  Country: None (occurrence: None)
  Receive Date: 20120208
  Receipt Date: 20120206
  Transmission Date: 20120608
  Serious: Yes (Disabling)
  Sender: FDA-Public Use
  Company Number: PL-B.I. PHARMACEUTICALS,INC./RIDGEFIELD-2011-AP-00741AP

PATIENT
  Sex: Female
  Weight: 61 kg

DRUGS (3)
  1. PRADAXA [Suspect]
     Indication: KNEE OPERATION
     Dosage: 220 MG
     Route: 048
     Dates: start: 20101122, end: 20101221
  2. METHOTREXATE [Concomitant]
     Indication: RHEUMATOID ARTHRITIS
     Dosage: 2.8571 MG
     Dates: start: 20020101
  3. ENCORTOLON [Concomitant]
     Indication: RHEUMATOID ARTHRITIS
     Dosage: 1.0714 MG
     Dates: start: 20020101

REACTIONS (1)
  - EMBOLISM VENOUS [None]
